FAERS Safety Report 24437999 (Version 1)
Quarter: 2024Q4

REPORT INFORMATION
  Report Type: Spontaneous
  Country: US (occurrence: None)
  Receive Date: 20241012
  Receipt Date: 20241012
  Transmission Date: 20250114
  Serious: Yes (Life-Threatening, Hospitalization)
  Sender: Public
  Company Number: None

PATIENT
  Age: 59 Year
  Sex: Male
  Weight: 95.4 kg

DRUGS (5)
  1. HUMIRA [Suspect]
     Active Substance: ADALIMUMAB
     Indication: Psoriatic arthropathy
     Dosage: OTHER QUANTITY : 1 INJECTION(S);?OTHER FREQUENCY : MONTH;?OTHER ROUTE : INJECTED INTO THE SOTMACH SK
     Route: 050
     Dates: start: 20240410, end: 20240821
  2. COSENTYX [Concomitant]
     Active Substance: SECUKINUMAB
  3. VITAMIN B [Concomitant]
     Active Substance: VITAMIN B
  4. HERBALS\TURMERIC [Concomitant]
     Active Substance: HERBALS\TURMERIC
  5. VITAMIN D [Concomitant]
     Active Substance: VITAMIN D NOS

REACTIONS (5)
  - Economic problem [None]
  - Insurance issue [None]
  - Abdominal pain upper [None]
  - Hypertension [None]
  - Vasculitis [None]

NARRATIVE: CASE EVENT DATE: 20240820
